FAERS Safety Report 13497559 (Version 1)
Quarter: 2017Q2

REPORT INFORMATION
  Report Type: Spontaneous
  Country: SE (occurrence: SE)
  Receive Date: 20170428
  Receipt Date: 20170428
  Transmission Date: 20170830
  Serious: Yes (Hospitalization)
  Sender: FDA-Public Use
  Company Number: SE-ELI_LILLY_AND_COMPANY-SE201704010642

PATIENT
  Age: 67 Year
  Sex: Female

DRUGS (21)
  1. FOLACIN                            /00024201/ [Concomitant]
     Active Substance: FOLIC ACID
  2. KALCIPOS-D [Concomitant]
     Active Substance: CALCIUM CARBONATE\CHOLECALCIFEROL
  3. EMSELEX                            /01760401/ [Concomitant]
     Active Substance: DARIFENACIN HYDROBROMIDE
  4. LEVAXIN [Concomitant]
     Active Substance: LEVOTHYROXINE SODIUM
  5. METFORMIN ACTAVIS [Concomitant]
     Active Substance: METFORMIN HYDROCHLORIDE
  6. NORDITROPIN [Concomitant]
     Active Substance: SOMATROPIN
  7. NITROLINGUAL [Concomitant]
     Active Substance: NITROGLYCERIN
  8. HUMALOG [Suspect]
     Active Substance: INSULIN LISPRO
     Dosage: 32 IU, UNKNOWN
     Route: 065
  9. METHOTREXATE ORION [Concomitant]
     Active Substance: METHOTREXATE
  10. NOVORAPID [Concomitant]
     Active Substance: INSULIN ASPART
  11. BEZALIP [Concomitant]
     Active Substance: BEZAFIBRATE
  12. HUMALOG [Suspect]
     Active Substance: INSULIN LISPRO
     Indication: DIABETES MELLITUS
     Dosage: UNK, PRN
     Route: 058
  13. LANTUS [Concomitant]
     Active Substance: INSULIN GLARGINE
     Indication: PRODUCT USED FOR UNKNOWN INDICATION
     Dosage: 32 IU, BID
     Route: 065
  14. IMDUR [Concomitant]
     Active Substance: ISOSORBIDE MONONITRATE
  15. MINIRIN [Concomitant]
     Active Substance: DESMOPRESSIN ACETATE
  16. HIDROCORTISON [Concomitant]
     Active Substance: HYDROCORTISONE
  17. SYMBICORT [Concomitant]
     Active Substance: BUDESONIDE\FORMOTEROL FUMARATE DIHYDRATE
  18. MOVICOL [Concomitant]
     Active Substance: POLYETHYLENE GLYCOL 3350\POTASSIUM CHLORIDE\SODIUM BICARBONATE\SODIUM CHLORIDE
  19. OMEPRAZOL ACTAVIS [Concomitant]
     Active Substance: OMEPRAZOLE
  20. VICTOZA [Concomitant]
     Active Substance: LIRAGLUTIDE
  21. LOSARTAN ACTAVIS [Concomitant]
     Active Substance: LOSARTAN

REACTIONS (2)
  - Overdose [Recovered/Resolved]
  - Wrong drug administered [Recovered/Resolved]

NARRATIVE: CASE EVENT DATE: 20150405
